FAERS Safety Report 22199373 (Version 1)
Quarter: 2023Q2

REPORT INFORMATION
  Report Type: Spontaneous
  Country: US (occurrence: US)
  Receive Date: 20230411
  Receipt Date: 20230411
  Transmission Date: 20230721
  Serious: No
  Sender: FDA-Public Use
  Company Number: US-ALKEM LABORATORIES LIMITED-US-ALKEM-2022-03142

PATIENT
  Age: 59 Year
  Sex: Female

DRUGS (5)
  1. QUETIAPINE FUMARATE [Suspect]
     Active Substance: QUETIAPINE FUMARATE
     Indication: Mania
     Dosage: 150 MILLIGRAM PER DAY
     Route: 065
  2. QUETIAPINE FUMARATE [Suspect]
     Active Substance: QUETIAPINE FUMARATE
     Dosage: 500 MILLIGRAM PER DAY
     Route: 065
  3. QUETIAPINE FUMARATE [Suspect]
     Active Substance: QUETIAPINE FUMARATE
     Dosage: 300 MILLIGRAM PER DAY
     Route: 065
  4. CLONAZEPAM [Suspect]
     Active Substance: CLONAZEPAM
     Indication: Mania
     Dosage: 1 MILLIGRAM PER DAY
     Route: 065
  5. LITHIUM [Suspect]
     Active Substance: LITHIUM
     Indication: Mania
     Dosage: 1200 MILLIGRAM PER DAY
     Route: 065

REACTIONS (3)
  - Joint swelling [Unknown]
  - Oedema peripheral [Recovered/Resolved]
  - Rash [Recovered/Resolved]
